FAERS Safety Report 19745579 (Version 2)
Quarter: 2022Q1

REPORT INFORMATION
  Report Type: Spontaneous
  Country: US (occurrence: None)
  Receive Date: 20210825
  Receipt Date: 20220311
  Transmission Date: 20220423
  Serious: Yes (Other)
  Sender: FDA-Public Use
  Company Number: 2021A687869

PATIENT
  Sex: Male
  Weight: 113.4 kg

DRUGS (19)
  1. PRILOSEC OTC [Suspect]
     Active Substance: OMEPRAZOLE MAGNESIUM
     Indication: Gastrooesophageal reflux disease
     Route: 048
     Dates: start: 2010, end: 2018
  2. OMEPRAZOLE [Suspect]
     Active Substance: OMEPRAZOLE
     Indication: Gastrooesophageal reflux disease
     Dosage: 20.0MG UNKNOWN
     Route: 048
     Dates: start: 2017, end: 2018
  3. OMEPRAZOLE [Suspect]
     Active Substance: OMEPRAZOLE
     Indication: Gastrooesophageal reflux disease
     Dosage: 20.0MG UNKNOWN
     Route: 048
     Dates: start: 20180110
  4. PANTOPRAZOLE [Suspect]
     Active Substance: PANTOPRAZOLE
     Indication: Gastrooesophageal reflux disease
     Dosage: 40.0MG UNKNOWN
     Route: 065
     Dates: start: 2018, end: 2019
  5. PANTOPRAZOLE [Suspect]
     Active Substance: PANTOPRAZOLE
     Indication: Gastrooesophageal reflux disease
     Dosage: 40.0MG UNKNOWN
     Route: 065
     Dates: start: 20190217
  6. LISINOPRIL [Concomitant]
     Active Substance: LISINOPRIL
     Indication: Blood pressure increased
  7. ATORVASTATIN [Concomitant]
     Active Substance: ATORVASTATIN
     Indication: Blood cholesterol abnormal
  8. NAPROXEN [Concomitant]
     Active Substance: NAPROXEN
     Indication: Antiinflammatory therapy
  9. CEPHALEXIN [Concomitant]
     Active Substance: CEPHALEXIN
     Indication: Infection
  10. AMOXICILLIN [Concomitant]
     Active Substance: AMOXICILLIN
     Indication: Infection
  11. ZANTAC [Concomitant]
     Active Substance: RANITIDINE HYDROCHLORIDE
  12. AMLODIPINE BESYLATE [Concomitant]
     Active Substance: AMLODIPINE BESYLATE
  13. ATENOLOL [Concomitant]
     Active Substance: ATENOLOL
  14. GABAPENTIN [Concomitant]
     Active Substance: GABAPENTIN
  15. GLIPIZIDE [Concomitant]
     Active Substance: GLIPIZIDE
  16. PREDNISONE [Concomitant]
     Active Substance: PREDNISONE
  17. ROSUVASTATIN [Concomitant]
     Active Substance: ROSUVASTATIN
  18. TERAZOSIN [Concomitant]
     Active Substance: TERAZOSIN HYDROCHLORIDE
  19. ASPIRIN [Concomitant]
     Active Substance: ASPIRIN

REACTIONS (4)
  - Chronic kidney disease [Not Recovered/Not Resolved]
  - Renal failure [Not Recovered/Not Resolved]
  - Rebound acid hypersecretion [Unknown]
  - Depression [Unknown]
